FAERS Safety Report 7435608-2 (Version None)
Quarter: 2011Q2

REPORT INFORMATION
  Report Type: 
  Country: None (occurrence: None)
  Receive Date: 20110418
  Receipt Date: 20110407
  Transmission Date: 20111010
  Serious: Yes (Death, Hospitalization)
  Sender: FDA-Public Use
  Company Number: UTC-005538

PATIENT
  Age: 65 Year
  Sex: Female
  Weight: 97.5 kg

DRUGS (3)
  1. REMODULIN [Suspect]
     Indication: PULMONARY ARTERIAL HYPERTENSION
     Dosage: 37.44 UG/KG (0.026 UG/KG,1 IN 1 MIN),INTRAVENOUS
     Route: 042
  2. DIURETICS (DIURETICS) [Concomitant]
  3. COUMADIN [Concomitant]

REACTIONS (2)
  - PYREXIA [None]
  - ARTHRITIS INFECTIVE [None]
